FAERS Safety Report 12640834 (Version 1)
Quarter: 2016Q3

REPORT INFORMATION
  Report Type: Spontaneous
  Country: US (occurrence: US)
  Receive Date: 20160810
  Receipt Date: 20160810
  Transmission Date: 20161109
  Serious: No
  Sender: FDA-Public Use
  Company Number: US-CELGENEUS-USA-2016080587

PATIENT
  Age: 55 Year
  Sex: Female
  Weight: 80.36 kg

DRUGS (1)
  1. OTEZLA [Suspect]
     Active Substance: APREMILAST
     Indication: PSORIASIS
     Dosage: 60 MILLIGRAM
     Route: 048
     Dates: start: 20160617

REACTIONS (2)
  - Pruritus [Not Recovered/Not Resolved]
  - Skin hypertrophy [Not Recovered/Not Resolved]

NARRATIVE: CASE EVENT DATE: 20160617
